FAERS Safety Report 9256318 (Version 1)
Quarter: 2013Q2

REPORT INFORMATION
  Report Type: Spontaneous
  Country: US (occurrence: US)
  Receive Date: 20130425
  Receipt Date: 20130425
  Transmission Date: 20140414
  Serious: No
  Sender: FDA-Public Use
  Company Number: US-AMGEN-USASP2011050863

PATIENT
  Age: 74 Year
  Sex: Female
  Weight: 64 kg

DRUGS (14)
  1. NEULASTA [Suspect]
     Indication: NEUTROPENIA
     Dosage: 6 MG, Q2WK
     Dates: start: 20110913
  2. CYCLOPHOSPHAMIDE [Concomitant]
     Dosage: 1000 MG, Q2WK
     Dates: start: 20110912, end: 20111230
  3. METHOTREXATE [Concomitant]
     Dosage: 70 MG, Q2WK
     Dates: start: 20110912, end: 20111230
  4. FLUOROURACIL [Concomitant]
     Dosage: 1000 MG, Q2WK
     Dates: start: 20110912, end: 20111230
  5. ZOCOR [Concomitant]
     Dosage: 40 MG, QD
  6. CALCIUM [Concomitant]
     Dosage: 1000 MG, QD
  7. ASPIRIN [Concomitant]
     Dosage: 71 MG, QD
  8. MULTIVITAMIN [Concomitant]
     Dosage: UNK
  9. GLUCOSAMINE [Concomitant]
     Dosage: UNK
  10. FISH OIL [Concomitant]
     Dosage: 1200 MG, QD
  11. MIRALAX [Concomitant]
     Dosage: UNK
  12. IBUPROFEN [Concomitant]
     Dosage: 200 MG, PRN
  13. MELATONIN [Concomitant]
     Indication: INSOMNIA
     Dosage: 5 MG, PRN
  14. ZYRTEC [Concomitant]
     Dosage: 10 MG, QD

REACTIONS (5)
  - Back pain [Recovered/Resolved]
  - Headache [Not Recovered/Not Resolved]
  - Musculoskeletal pain [Unknown]
  - Bone pain [Recovered/Resolved]
  - Arthralgia [Recovered/Resolved]
